FAERS Safety Report 4396258-8 (Version None)
Quarter: 2004Q3

REPORT INFORMATION
  Report Type: 
  Country: None (occurrence: None)
  Receive Date: 20040709
  Receipt Date: 20040628
  Transmission Date: 20050211
  Serious: Yes (Death)
  Sender: FDA-Public Use
  Company Number: 2004221583US

PATIENT
  Age: 30 Year
  Sex: Female

DRUGS (2)
  1. DOXORUBICIN PFS (DOXORUBICIN HYDROCHLORIDE) SOLUTION, STERILE [Suspect]
     Indication: BREAST CANCER
     Dosage: 60 MG/M2, CYCLIC
     Dates: start: 20020622
  2. CYCLOPHOSPHAMIDE [Suspect]
     Indication: BREAST CANCER
     Dosage: 600 MG/M2, CYCLIC
     Dates: start: 20020622

REACTIONS (18)
  - BLOOD PRESSURE DECREASED [None]
  - BLOOD PRESSURE SYSTOLIC INSPIRATORY DECREASED [None]
  - BREATH SOUNDS ABSENT [None]
  - CARDIAC TAMPONADE [None]
  - CARDIO-RESPIRATORY ARREST [None]
  - CHEST DISCOMFORT [None]
  - DIASTOLIC DYSFUNCTION [None]
  - DYSPNOEA [None]
  - DYSPNOEA PAROXYSMAL NOCTURNAL [None]
  - HEART RATE INCREASED [None]
  - OEDEMA PERIPHERAL [None]
  - PALPITATIONS [None]
  - PARANEOPLASTIC SYNDROME [None]
  - PERICARDIAL EFFUSION [None]
  - RENAL FAILURE [None]
  - SYSTEMIC SCLEROSIS [None]
  - TRICUSPID VALVE INCOMPETENCE [None]
  - WHITE BLOOD CELL COUNT INCREASED [None]
